FAERS Safety Report 4961968-8 (Version None)
Quarter: 2006Q2

REPORT INFORMATION
  Report Type: 
  Country: None (occurrence: None)
  Receive Date: 20060403
  Receipt Date: 20060403
  Transmission Date: 20061013
  Serious: Yes (Death, Hospitalization)
  Sender: FDA-Public Use
  Company Number: None

PATIENT
  Sex: Female
  Weight: 54.4 kg

DRUGS (3)
  1. CYTARABINE [Suspect]
     Indication: ACUTE MYELOID LEUKAEMIA
     Dosage: 1120 MG
     Dates: start: 20060222, end: 20060301
  2. DAUNORUBICIN HCL [Suspect]
     Dosage: 420 MG
     Dates: start: 20060222, end: 20060224
  3. G-CSF (FILGRASTIM, AMGEN) [Suspect]
     Dosage: 300 MCG
     Dates: start: 20060316, end: 20060316

REACTIONS (25)
  - ANOREXIA [None]
  - ANXIETY [None]
  - ASCITES [None]
  - CARDIAC ARREST [None]
  - CARDIAC FAILURE CONGESTIVE [None]
  - CARDIOMYOPATHY [None]
  - CEREBROVASCULAR DISORDER [None]
  - CONVULSION [None]
  - CYTOGENETIC ANALYSIS ABNORMAL [None]
  - DISCOMFORT [None]
  - DYSPNOEA [None]
  - FUNGAL INFECTION [None]
  - GENERAL PHYSICAL HEALTH DETERIORATION [None]
  - HAEMORRHAGE [None]
  - HYPOREFLEXIA [None]
  - HYPOTENSION [None]
  - LUNG INFILTRATION [None]
  - OXYGEN SATURATION DECREASED [None]
  - PANIC ATTACK [None]
  - PLEURAL EFFUSION [None]
  - PNEUMONIA [None]
  - PYREXIA [None]
  - RENAL FAILURE [None]
  - TACHYCARDIA [None]
  - TACHYPNOEA [None]
